FAERS Safety Report 9737023 (Version 2)
Quarter: 2015Q3

REPORT INFORMATION
  Report Type: Spontaneous
  Country: US (occurrence: US)
  Receive Date: 20131206
  Receipt Date: 20150804
  Transmission Date: 20151125
  Serious: No
  Sender: FDA-Public Use
  Company Number: US-GILEAD-2009-0024217

PATIENT
  Age: 73 Year
  Sex: Female
  Weight: 78.47 kg

DRUGS (18)
  1. METOLAZONE. [Concomitant]
     Active Substance: METOLAZONE
  2. SENNA [Concomitant]
     Active Substance: SENNA LEAF\SENNOSIDES\SENNOSIDES A AND B
  3. COLACE [Concomitant]
     Active Substance: DOCUSATE SODIUM
  4. ALBUTEROL. [Concomitant]
     Active Substance: ALBUTEROL
  5. PRINIVIL [Concomitant]
     Active Substance: LISINOPRIL
  6. POTASSIUM [Concomitant]
     Active Substance: POTASSIUM
  7. NASONEX [Concomitant]
     Active Substance: MOMETASONE FUROATE
  8. FUROSEMIDE. [Concomitant]
     Active Substance: FUROSEMIDE
  9. ASPIRIN. [Concomitant]
     Active Substance: ASPIRIN
  10. PAXIL [Concomitant]
     Active Substance: PAROXETINE HYDROCHLORIDE
  11. PROZAC [Concomitant]
     Active Substance: FLUOXETINE HYDROCHLORIDE
  12. AFRIN [Concomitant]
     Active Substance: OXYMETAZOLINE
  13. SIMVASTATIN. [Concomitant]
     Active Substance: SIMVASTATIN
  14. TYLENOL [Concomitant]
     Active Substance: ACETAMINOPHEN
  15. LETAIRIS [Suspect]
     Active Substance: AMBRISENTAN
     Indication: PULMONARY ARTERIAL HYPERTENSION
     Route: 048
     Dates: start: 20071205
  16. K-DUR [Concomitant]
     Active Substance: POTASSIUM CHLORIDE
  17. ALDACTONE [Concomitant]
     Active Substance: SPIRONOLACTONE
  18. MULTIVITAMIN [Concomitant]
     Active Substance: VITAMINS

REACTIONS (2)
  - Myalgia [Unknown]
  - Muscle spasms [Unknown]
